FAERS Safety Report 10581660 (Version 1)
Quarter: 2014Q4

REPORT INFORMATION
  Report Type: Spontaneous
  Country: US (occurrence: US)
  Receive Date: 20141113
  Receipt Date: 20141113
  Transmission Date: 20150529
  Serious: No
  Sender: FDA-Public Use
  Company Number: US-TEVA-520040USA

PATIENT
  Age: 27 Year
  Sex: Female

DRUGS (1)
  1. COPAXONE [Suspect]
     Active Substance: GLATIRAMER ACETATE
     Indication: MULTIPLE SCLEROSIS
     Route: 058
     Dates: start: 20140917

REACTIONS (5)
  - Injection site mass [Unknown]
  - Injection site erythema [Unknown]
  - Injection site reaction [Unknown]
  - Injection site pruritus [Unknown]
  - Injection site scar [Unknown]

NARRATIVE: CASE EVENT DATE: 20140917
